FAERS Safety Report 12825311 (Version 1)
Quarter: 2016Q4

REPORT INFORMATION
  Report Type: Other
  Country: CA (occurrence: CA)
  Receive Date: 20161006
  Receipt Date: 20161006
  Transmission Date: 20170207
  Serious: Yes (Other)
  Sender: FDA-Public Use
  Company Number: CA-TAKEDA-2016TUS017597

PATIENT
  Age: 17 Year
  Sex: Male

DRUGS (2)
  1. ISOTRETINOIN [Concomitant]
     Active Substance: ISOTRETINOIN
     Dosage: UNK
  2. DEXILANT [Suspect]
     Active Substance: DEXLANSOPRAZOLE
     Indication: GASTROOESOPHAGEAL REFLUX DISEASE
     Dosage: 60 MG, QD
     Route: 047

REACTIONS (1)
  - Anaemia vitamin B12 deficiency [Unknown]
